FAERS Safety Report 17812173 (Version 7)
Quarter: 2022Q1

REPORT INFORMATION
  Report Type: Spontaneous
  Country: US (occurrence: US)
  Receive Date: 20200521
  Receipt Date: 20220304
  Transmission Date: 20220423
  Serious: Yes (Hospitalization, Other)
  Sender: FDA-Public Use
  Company Number: US-GLAXOSMITHKLINE-US2018GSK152002

PATIENT
  Age: 58 Year
  Sex: Female
  Weight: 220 kg

DRUGS (10)
  1. PREVACID 24 HR [Suspect]
     Active Substance: LANSOPRAZOLE
     Indication: Gastrooesophageal reflux disease
     Dosage: UNK
     Route: 048
  2. PREVACID [Suspect]
     Active Substance: LANSOPRAZOLE
     Indication: Gastrooesophageal reflux disease
     Dosage: 30 MG, QD
     Route: 048
  3. LANSOPRAZOLE [Suspect]
     Active Substance: LANSOPRAZOLE
     Indication: Product used for unknown indication
     Dosage: 30 MG, QD
     Route: 048
     Dates: start: 2016, end: 20200301
  4. NEXIUM 24HR [Suspect]
     Active Substance: ESOMEPRAZOLE MAGNESIUM
     Indication: Product used for unknown indication
     Dosage: UNK, QD
     Route: 065
     Dates: start: 200711, end: 201611
  5. OMEPRAZOLE [Suspect]
     Active Substance: OMEPRAZOLE
     Indication: Gastrooesophageal reflux disease
     Dosage: 20 MG, QD
     Route: 048
  6. OMEPRAZOLE [Suspect]
     Active Substance: OMEPRAZOLE
     Indication: Gastric ulcer
     Dosage: 40 MG, QD
     Route: 048
  7. DEXILANT [Suspect]
     Active Substance: DEXLANSOPRAZOLE
     Indication: Gastrooesophageal reflux disease
     Dosage: UNK, QD
     Route: 065
     Dates: start: 200711, end: 201611
  8. PRILOSEC [Suspect]
     Active Substance: OMEPRAZOLE MAGNESIUM
     Indication: Product used for unknown indication
     Dosage: 20 MG, QD
     Route: 048
  9. PRILOSEC [Suspect]
     Active Substance: OMEPRAZOLE MAGNESIUM
     Indication: Gastrooesophageal reflux disease
     Dosage: UNK UNK, QD
     Route: 065
     Dates: start: 200711, end: 201611
  10. LANSOPRAZOLE [Suspect]
     Active Substance: LANSOPRAZOLE
     Indication: Product used for unknown indication
     Dosage: 30 MG, QD
     Route: 048
     Dates: start: 20180711, end: 20220107

REACTIONS (38)
  - Renal haematoma [Unknown]
  - End stage renal disease [Unknown]
  - Nephritic syndrome [Unknown]
  - Proteinuria [Unknown]
  - Albuminuria [Unknown]
  - Haemodialysis [Unknown]
  - Chronic kidney disease [Unknown]
  - Renal impairment [Unknown]
  - Anuria [Unknown]
  - Acute kidney injury [Unknown]
  - Tubulointerstitial nephritis [Unknown]
  - Intercapillary glomerulosclerosis [Unknown]
  - Pyelonephritis [Unknown]
  - Renal tubular necrosis [Unknown]
  - Cardiorenal syndrome [Unknown]
  - Renal tubular atrophy [Unknown]
  - Glomerulonephritis chronic [Unknown]
  - Renal failure [Unknown]
  - Kidney fibrosis [Unknown]
  - Diabetic nephropathy [Unknown]
  - Hypertensive nephropathy [Unknown]
  - Nephrogenic anaemia [Unknown]
  - Nephrosclerosis [Unknown]
  - Renal cyst [Unknown]
  - Nephropathy [Unknown]
  - Microalbuminuria [Unknown]
  - Nocturia [Unknown]
  - Renal disorder [Unknown]
  - Renal colic [Unknown]
  - Urinary incontinence [Unknown]
  - Pollakiuria [Unknown]
  - Oliguria [Unknown]
  - Micturition urgency [Unknown]
  - Dialysis [Unknown]
  - Dysuria [Unknown]
  - Focal segmental glomerulosclerosis [Unknown]
  - Polyuria [Unknown]
  - Device dependence [Unknown]

NARRATIVE: CASE EVENT DATE: 20150829
